FAERS Safety Report 5301347-7 (Version None)
Quarter: 2007Q1

REPORT INFORMATION
  Report Type: 
  Country: None (occurrence: None)
  Receive Date: 20070201
  Receipt Date: 20061213
  Transmission Date: 20070707
  Serious: No
  Sender: FDA-Public Use
  Company Number: 2006PV026911

PATIENT
  Age: 66 Year
  Sex: Female
  Weight: 88.4514 kg

DRUGS (5)
  1. BYETTA [Suspect]
     Indication: DIABETES MELLITUS NON-INSULIN-DEPENDENT
     Dosage: SEE IMAGE
     Route: 058
     Dates: start: 20060901, end: 20061101
  2. BYETTA [Suspect]
     Indication: DIABETES MELLITUS NON-INSULIN-DEPENDENT
     Dosage: SEE IMAGE
     Route: 058
     Dates: start: 20061101
  3. ACTOS [Concomitant]
  4. DIOVAN [Concomitant]
  5. COREG [Concomitant]

REACTIONS (2)
  - HAIR GROWTH ABNORMAL [None]
  - HYPOTRICHOSIS [None]
